FAERS Safety Report 7312363-8 (Version None)
Quarter: 2011Q1

REPORT INFORMATION
  Report Type: 
  Country: None (occurrence: None)
  Receive Date: 20110224
  Receipt Date: 20110130
  Transmission Date: 20110831
  Serious: No
  Sender: FDA-Public Use
  Company Number: US-B.I. PHARMACEUTICALS,INC./RIDGEFIELD-2011-BP-03012BP

PATIENT
  Age: 56 Year
  Sex: Female

DRUGS (12)
  1. BENEFIBER [Concomitant]
     Indication: IRRITABLE BOWEL SYNDROME
     Route: 048
     Dates: start: 20100101
  2. BACLOFEN [Concomitant]
     Indication: MUSCLE SPASMS
     Route: 048
  3. PRADAXA [Suspect]
     Indication: ATRIAL FIBRILLATION
     Dosage: 300 MG
     Route: 048
     Dates: start: 20110121
  4. ASPIRIN [Concomitant]
     Indication: ATRIAL FIBRILLATION
     Dosage: 325 MG
     Route: 048
     Dates: start: 20110122
  5. PREMARIN [Concomitant]
     Indication: HORMONE THERAPY
     Route: 048
  6. SIMVASTATIN [Concomitant]
     Indication: BLOOD CHOLESTEROL INCREASED
     Dosage: 20 MG
     Route: 048
     Dates: start: 20110122
  7. KCL ER [Concomitant]
     Indication: MINERAL SUPPLEMENTATION
     Dosage: 10 MEQ
     Route: 048
  8. HYDROCODONE BITARTRATE [Concomitant]
     Indication: PAIN
     Route: 048
  9. SOTALOL HYDROCHLORIDE [Suspect]
     Indication: ATRIAL FIBRILLATION
     Dates: end: 20110126
  10. LISINOPRIL [Concomitant]
     Indication: HYPERTENSION
     Dosage: 5 MG
     Route: 048
     Dates: start: 20110122
  11. LORAZEPAM [Concomitant]
     Indication: ANXIETY
     Dosage: 20 MG
     Route: 048
  12. OMEPRAZOLE [Concomitant]
     Indication: GASTROOESOPHAGEAL REFLUX DISEASE
     Dosage: 20 MG
     Route: 048
     Dates: start: 20100101

REACTIONS (4)
  - DIARRHOEA [None]
  - MUSCLE SPASMS [None]
  - ARRHYTHMIA [None]
  - HAEMATOCHEZIA [None]
